FAERS Safety Report 24567979 (Version 1)
Quarter: 2024Q4

REPORT INFORMATION
  Report Type: Spontaneous
  Country: GB (occurrence: GB)
  Receive Date: 20241031
  Receipt Date: 20241031
  Transmission Date: 20250114
  Serious: Yes (Death, Congenital Anomaly, Other)
  Sender: SANDOZ
  Company Number: GB-NOVPHSZ-PHHY2018GB161759

PATIENT

DRUGS (8)
  1. ABACAVIR\LAMIVUDINE [Suspect]
     Active Substance: ABACAVIR\LAMIVUDINE
     Indication: HIV infection
     Dosage: UNK
     Route: 064
  2. LEUCOVORIN CALCIUM [Suspect]
     Active Substance: LEUCOVORIN CALCIUM
     Indication: Product used for unknown indication
     Dosage: 15 MG, QD
     Route: 064
  3. CLINDAMYCIN [Suspect]
     Active Substance: CLINDAMYCIN
     Indication: Cerebral toxoplasmosis
     Dosage: 600 MG, QD
     Route: 064
  4. DAPSONE [Suspect]
     Active Substance: DAPSONE
     Indication: Toxoplasmosis prophylaxis
     Dosage: 100 MG, QD
     Route: 064
  5. EFAVIRENZ [Suspect]
     Active Substance: EFAVIRENZ
     Indication: HIV infection
     Dosage: UNK
     Route: 064
  6. PYRIMETHAMINE [Suspect]
     Active Substance: PYRIMETHAMINE
     Dosage: 50 MG, QD
     Route: 064
  7. PYRIMETHAMINE [Suspect]
     Active Substance: PYRIMETHAMINE
     Indication: Product used for unknown indication
     Dosage: 75 MG, QD
     Route: 064
  8. SULFADIAZINE [Suspect]
     Active Substance: SULFADIAZINE
     Indication: Cerebral toxoplasmosis
     Dosage: 2 G, QD
     Route: 065

REACTIONS (2)
  - Congenital toxoplasmosis [Fatal]
  - Foetal exposure during pregnancy [Unknown]
